FAERS Safety Report 6096436-6 (Version None)
Quarter: 2009Q1

REPORT INFORMATION
  Report Type: 
  Country: None (occurrence: None)
  Receive Date: 20090227
  Receipt Date: 20081219
  Transmission Date: 20090719
  Serious: Yes (Other)
  Sender: FDA-Public Use
  Company Number: A0761067A

PATIENT
  Age: 14 Year
  Sex: Female

DRUGS (2)
  1. LAMICTAL [Suspect]
     Indication: EPILEPSY
     Dosage: 350MG PER DAY
     Route: 048
     Dates: start: 20060101
  2. BIRTH CONTROL [Concomitant]

REACTIONS (3)
  - GRAND MAL CONVULSION [None]
  - MUSCLE CONTRACTIONS INVOLUNTARY [None]
  - MUSCLE TIGHTNESS [None]
